FAERS Safety Report 15641684 (Version 1)
Quarter: 2018Q4

REPORT INFORMATION
  Report Type: Spontaneous
  Country: US (occurrence: US)
  Receive Date: 20181121
  Receipt Date: 20181121
  Transmission Date: 20190205
  Serious: No
  Sender: FDA-Public Use
  Company Number: US-ACCORD-070023

PATIENT
  Age: 13 Year
  Sex: Female
  Weight: 57 kg

DRUGS (6)
  1. DOCUSATE [Concomitant]
     Active Substance: DOCUSATE
     Dosage: 100 MG QD
  2. HYDROXYZINE [Concomitant]
     Active Substance: HYDROXYZINE HYDROCHLORIDE
     Dosage: 25 MG PRN
  3. HYDROCHLOROTHIAZIDE ACCORD [Suspect]
     Active Substance: HYDROCHLOROTHIAZIDE
     Indication: RENAL LITHIASIS PROPHYLAXIS
     Dosage: STRENGTH: 12.5 MG
     Route: 048
     Dates: start: 20180713
  4. SENNA ALEXANDRINA [Concomitant]
     Active Substance: SENNA LEAF
     Dosage: 8.6 MG QD
  5. OMEPRAZOLE. [Concomitant]
     Active Substance: OMEPRAZOLE
     Dosage: 40 MG QD
  6. HYOSCYAMINE/HYOSCYAMINE HYDROBROMIDE/HYOSCYAMINE SULFATE [Concomitant]
     Dosage: 0.125 MG PRN

REACTIONS (2)
  - Off label use [Unknown]
  - Gastroenteritis viral [Recovered/Resolved]
